FAERS Safety Report 23258515 (Version 1)
Quarter: 2023Q4

REPORT INFORMATION
  Report Type: Spontaneous
  Country: US (occurrence: US)
  Receive Date: 20231204
  Receipt Date: 20231204
  Transmission Date: 20240109
  Serious: No
  Sender: FDA-Public Use
  Company Number: US-PFIZER INC-202300404976

PATIENT
  Age: 77 Year
  Sex: Female
  Weight: 83.447 kg

DRUGS (3)
  1. IBRANCE [Interacting]
     Active Substance: PALBOCICLIB
     Indication: Breast cancer
     Dosage: TAKE ONE TABLET DAILY ON DAYS 1-21 OF A 28 DAY CYCLE
     Route: 048
     Dates: start: 2023
  2. ERYTHROMYCIN [Interacting]
     Active Substance: ERYTHROMYCIN
     Indication: Skin lesion
     Dosage: UNK
     Dates: start: 2023
  3. FEMARA [Concomitant]
     Active Substance: LETROZOLE
     Dosage: UNK

REACTIONS (4)
  - Drug interaction [Unknown]
  - Hot flush [Unknown]
  - Arthralgia [Unknown]
  - Fatigue [Unknown]

NARRATIVE: CASE EVENT DATE: 20230101
